FAERS Safety Report 12613793 (Version 2)
Quarter: 2016Q3

REPORT INFORMATION
  Report Type: Spontaneous
  Country: US (occurrence: US)
  Receive Date: 20160802
  Receipt Date: 20160815
  Transmission Date: 20161109
  Serious: No
  Sender: FDA-Public Use
  Company Number: US-PFIZER INC-2016332814

PATIENT
  Age: 61 Year
  Sex: Female
  Weight: 115.65 kg

DRUGS (5)
  1. BABY ASPIRIN [Concomitant]
     Active Substance: ASPIRIN
     Dosage: UNK
  2. ZANTAC [Concomitant]
     Active Substance: RANITIDINE HYDROCHLORIDE
     Dosage: UNK
  3. DILTIAZEM. [Concomitant]
     Active Substance: DILTIAZEM
     Dosage: UNK
  4. SUTENT [Suspect]
     Active Substance: SUNITINIB MALATE
     Indication: GASTROINTESTINAL NEOPLASM
     Dosage: 50 MG, CYCLIC (1 TAB DAILY X 14 DAYS THEN 7 DAYS OFF, THEN RESTART)/(2 WEEKS ON/1 WEEK OFF)
     Dates: start: 20160709
  5. SUTENT [Suspect]
     Active Substance: SUNITINIB MALATE
     Indication: METASTATIC RENAL CELL CARCINOMA

REACTIONS (8)
  - Abdominal distension [Unknown]
  - Throat irritation [Unknown]
  - Product use issue [Unknown]
  - Nasal congestion [Unknown]
  - Cough [Unknown]
  - Abdominal pain upper [Unknown]
  - Decreased appetite [Unknown]
  - Glossitis [Unknown]
